FAERS Safety Report 5647184-5 (Version None)
Quarter: 2008Q1

REPORT INFORMATION
  Report Type: 
  Country: None (occurrence: None)
  Receive Date: 20080228
  Receipt Date: 20080228
  Transmission Date: 20080703
  Serious: Yes (Hospitalization)
  Sender: FDA-Public Use
  Company Number: None

PATIENT
  Age: 17 Year
  Sex: Male
  Weight: 91.8 kg

DRUGS (2)
  1. DOXIL [Suspect]
     Indication: HODGKIN'S DISEASE
     Dosage: 21MG ONCE -OVER 30 MIN IV
     Route: 042
     Dates: start: 20080226, end: 20080226
  2. DOXIL [Suspect]
     Indication: NEOPLASM RECURRENCE
     Dosage: 21MG ONCE -OVER 30 MIN IV
     Route: 042
     Dates: start: 20080226, end: 20080226

REACTIONS (6)
  - BLOOD PRESSURE INCREASED [None]
  - ERYTHEMA [None]
  - FEELING ABNORMAL [None]
  - HEART RATE INCREASED [None]
  - INFUSION RELATED REACTION [None]
  - RESPIRATORY RATE INCREASED [None]
